FAERS Safety Report 4968715-4 (Version None)
Quarter: 2006Q2

REPORT INFORMATION
  Report Type: 
  Country: None (occurrence: None)
  Receive Date: 20060411
  Receipt Date: 20060329
  Transmission Date: 20061013
  Serious: Yes (Hospitalization)
  Sender: FDA-Public Use
  Company Number: US-JNJFOC-20060302967

PATIENT
  Sex: Male
  Weight: 68.04 kg

DRUGS (7)
  1. REMICADE [Suspect]
     Route: 042
  2. REMICADE [Suspect]
     Route: 042
  3. REMICADE [Suspect]
     Route: 042
  4. REMICADE [Suspect]
     Indication: CROHN'S DISEASE
     Route: 042
  5. OXYCODONE [Concomitant]
  6. PREDNISONE [Concomitant]
  7. PROMAZINE HYDROCHLORIDE [Concomitant]
     Indication: PAIN

REACTIONS (1)
  - COLOSTOMY [None]
